FAERS Safety Report 4303170-9 (Version None)
Quarter: 2004Q1

REPORT INFORMATION
  Report Type: 
  Country: None (occurrence: None)
  Receive Date: 20040224
  Receipt Date: 20040217
  Transmission Date: 20041129
  Serious: Yes (Death, Hospitalization)
  Sender: FDA-Public Use
  Company Number: PHBS2004AT02365

PATIENT
  Age: 23 Year
  Sex: Female

DRUGS (2)
  1. CYCLOSPORINE [Suspect]
     Indication: HEART TRANSPLANT
     Dosage: UNK, UNK
     Route: 065
  2. CYCLOSPORINE [Suspect]
     Dosage: 20 MG/KG/D
     Route: 065

REACTIONS (10)
  - ARTERIOSCLEROSIS [None]
  - CARDIAC FAILURE [None]
  - COMPLICATIONS OF MATERNAL EXPOSURE TO THERAPEUTIC DRUGS [None]
  - DRUG EXPOSURE DURING PREGNANCY [None]
  - FOETAL GROWTH RETARDATION [None]
  - GRAFT COMPLICATION [None]
  - INDUCED LABOUR [None]
  - NORMAL NEWBORN [None]
  - PREGNANCY [None]
  - TREATMENT NONCOMPLIANCE [None]
